FAERS Safety Report 9636361 (Version 1)
Quarter: 2013Q4

REPORT INFORMATION
  Report Type: Spontaneous
  Country: US (occurrence: US)
  Receive Date: 20131021
  Receipt Date: 20131021
  Transmission Date: 20140711
  Serious: Yes (Hospitalization, Other)
  Sender: FDA-Public Use
  Company Number: US-B.I. PHARMACEUTICALS,INC./RIDGEFIELD-2013-BI-32984GD

PATIENT
  Age: 69 Year
  Sex: Female
  Weight: 165 kg

DRUGS (4)
  1. PRADAXA [Suspect]
     Indication: ATRIAL FIBRILLATION
     Dosage: 150 MG
     Route: 048
  2. CALCIUM [Concomitant]
  3. LEVOTHYROXINE [Concomitant]
  4. LOSARTAN [Concomitant]

REACTIONS (3)
  - Coagulopathy [Recovered/Resolved]
  - Procedural haemorrhage [Recovered/Resolved]
  - Acidosis [Unknown]
